FAERS Safety Report 8227599-1 (Version None)
Quarter: 2012Q1

REPORT INFORMATION
  Report Type: 
  Country: None (occurrence: None)
  Receive Date: 20120322
  Receipt Date: 20120321
  Transmission Date: 20120608
  Serious: Yes (Other)
  Sender: FDA-Public Use
  Company Number: US-PFIZER INC-2012073936

PATIENT
  Sex: Female
  Weight: 70.748 kg

DRUGS (10)
  1. FAMOTIDINE [Concomitant]
     Dosage: 20 MG, 2X/DAY
  2. GLUCOSAMINE [Concomitant]
     Dosage: 2000 MG, UNK
  3. FISH OIL [Concomitant]
     Dosage: 1200 MG, UNK
  4. PRAVASTATIN SODIUM [Concomitant]
     Indication: BLOOD CHOLESTEROL ABNORMAL
     Dosage: 40 MG, DAILY
  5. SUBOXONE [Concomitant]
     Indication: PAIN
     Dosage: UNK
  6. CHANTIX [Suspect]
     Indication: SMOKING CESSATION THERAPY
     Dosage: UNK
  7. ASPIRIN [Concomitant]
     Dosage: 325 MG, 2X/DAY
  8. FENOFIBRATE [Concomitant]
     Dosage: 48 MG, DAILY
  9. AMLODIPINE BESILATE [Concomitant]
     Indication: BLOOD PRESSURE ABNORMAL
     Dosage: 2.5MG, UNK
  10. PLAVIX [Concomitant]
     Dosage: 75 MG, DAILY

REACTIONS (2)
  - CEREBROVASCULAR ACCIDENT [None]
  - ARTERIOSCLEROSIS [None]
